FAERS Safety Report 5570220-1 (Version None)
Quarter: 2007Q4

REPORT INFORMATION
  Report Type: 
  Country: None (occurrence: None)
  Receive Date: 20071220
  Receipt Date: 20071210
  Transmission Date: 20080405
  Serious: Yes (Other)
  Sender: FDA-Public Use
  Company Number: US-PFIZER INC-2007104213

PATIENT
  Sex: Male

DRUGS (1)
  1. VIAGRA [Suspect]

REACTIONS (5)
  - GENITAL PAIN [None]
  - GENITAL SWELLING [None]
  - INTENTIONAL DRUG MISUSE [None]
  - PENIS DISORDER [None]
  - VASODILATATION [None]
